FAERS Safety Report 8071229 (Version 2)
Quarter: 2015Q2

REPORT INFORMATION
  Report Type: Spontaneous
  Country: US (occurrence: US)
  Receive Date: 20110805
  Receipt Date: 20150423
  Transmission Date: 20150821
  Serious: Yes (Other)
  Sender: FDA-Public Use
  Company Number: US-ROCHE-752073

PATIENT
  Sex: Female
  Weight: 77.1 kg

DRUGS (1)
  1. ACCUTANE [Suspect]
     Active Substance: ISOTRETINOIN
     Indication: ACNE
     Route: 065
     Dates: start: 199901, end: 2001

REACTIONS (8)
  - Colitis ulcerative [Unknown]
  - Low density lipoprotein increased [Unknown]
  - Irritable bowel syndrome [Unknown]
  - Pruritus [Unknown]
  - Palpitations [Unknown]
  - Intestinal haemorrhage [Unknown]
  - Inflammatory bowel disease [Unknown]
  - Gastrointestinal injury [Unknown]

NARRATIVE: CASE EVENT DATE: 1999
